FAERS Safety Report 7013573-X (Version None)
Quarter: 2010Q3

REPORT INFORMATION
  Report Type: 
  Country: None (occurrence: None)
  Receive Date: 20100924
  Receipt Date: 20100916
  Transmission Date: 20110219
  Serious: Yes (Hospitalization, Other)
  Sender: FDA-Public Use
  Company Number: US-AMGEN-QUU433929

PATIENT
  Sex: Male

DRUGS (7)
  1. NPLATE [Suspect]
     Indication: IDIOPATHIC THROMBOCYTOPENIC PURPURA
     Dates: start: 20100609, end: 20100729
  2. CORTICOSTEROIDS [Concomitant]
  3. IMMU-G [Concomitant]
     Route: 042
  4. PLATELETS [Concomitant]
  5. DEXAMETHASONE [Concomitant]
     Dates: start: 20090716
  6. CAMPATH [Concomitant]
     Route: 058
     Dates: start: 20100804
  7. VICOPROFEN (KNOLL LABS) [Concomitant]

REACTIONS (19)
  - ABDOMINAL PAIN [None]
  - ABSCESS LIMB [None]
  - CELLULITIS [None]
  - DEHYDRATION [None]
  - DIARRHOEA [None]
  - DRUG INEFFECTIVE [None]
  - ECCHYMOSIS [None]
  - FATIGUE [None]
  - HEADACHE [None]
  - INCREASED TENDENCY TO BRUISE [None]
  - MALAISE [None]
  - MALIGNANT NEOPLASM PROGRESSION [None]
  - NIGHT SWEATS [None]
  - OEDEMA PERIPHERAL [None]
  - PAIN [None]
  - PLATELET COUNT ABNORMAL [None]
  - STEROID THERAPY [None]
  - TRANSAMINASES INCREASED [None]
  - VENOUS INSUFFICIENCY [None]
